FAERS Safety Report 22291647 (Version 1)
Quarter: 2023Q2

REPORT INFORMATION
  Report Type: Spontaneous
  Country: FR (occurrence: FR)
  Receive Date: 20230507
  Receipt Date: 20230507
  Transmission Date: 20230722
  Serious: Yes (Death, Other)
  Sender: FDA-Public Use
  Company Number: FR-AMGEN-FRASP2023077284

PATIENT

DRUGS (2)
  1. PANITUMUMAB [Suspect]
     Active Substance: PANITUMUMAB
     Indication: Colorectal cancer metastatic
     Dosage: UNK
     Route: 065
  2. BEVACIZUMAB [Suspect]
     Active Substance: BEVACIZUMAB
     Indication: Colorectal cancer metastatic
     Dosage: UNK
     Route: 065

REACTIONS (7)
  - Death [Fatal]
  - Peritoneal carcinoma metastatic [Unknown]
  - Ascites [Unknown]
  - Intestinal obstruction [Unknown]
  - Therapy partial responder [Unknown]
  - Fistula [Unknown]
  - General physical health deterioration [Unknown]
